FAERS Safety Report 7094224-5 (Version None)
Quarter: 2010Q4

REPORT INFORMATION
  Report Type: 
  Country: None (occurrence: None)
  Receive Date: 20101110
  Receipt Date: 20101029
  Transmission Date: 20110411
  Serious: Yes (Disabling)
  Sender: FDA-Public Use
  Company Number: GB-GENENTECH-309174

PATIENT
  Sex: Male

DRUGS (11)
  1. RITUXIMAB [Suspect]
     Indication: B-CELL LYMPHOMA
     Dosage: 800 MG, UNK
     Route: 042
     Dates: start: 20100915, end: 20100915
  2. FLUDARABINE [Suspect]
     Indication: B-CELL LYMPHOMA
     Dosage: UNK
     Route: 065
  3. CYCLOPHOSPHAMIDE [Suspect]
     Indication: B-CELL LYMPHOMA
     Dosage: UNK
     Route: 065
  4. PERINDOPRIL ERBUMINE [Concomitant]
     Indication: HYPERTENSION
     Dosage: 4 MG, QAM
     Route: 048
  5. DIPYRIDAMOLE [Concomitant]
     Indication: ANTICOAGULANT THERAPY
     Dosage: 200 MG, BID
     Route: 048
  6. ATORVASTATIN [Concomitant]
     Indication: PRODUCT USED FOR UNKNOWN INDICATION
     Dosage: 40 MG, QAM
     Route: 048
  7. INDAPAMIDE [Concomitant]
     Indication: HYPERTENSION
     Dosage: 2.5 MG, QAM
     Route: 048
  8. ONDANSETRON [Concomitant]
     Indication: ANTIEMETIC SUPPORTIVE CARE
     Dosage: 8 MG, QAM
     Route: 048
     Dates: start: 20100915, end: 20100915
  9. CHLORPHENIRAMINE MALEATE [Concomitant]
     Indication: ANTIALLERGIC THERAPY
     Dosage: 4 MG, QAM
     Route: 048
     Dates: start: 20100915, end: 20100915
  10. PARACETAMOL [Concomitant]
     Indication: ANALGESIC THERAPY
     Dosage: 1000 MG, QAM
     Route: 048
     Dates: start: 20100915, end: 20100915
  11. COTRIM [Concomitant]
     Indication: ANTI-INFECTIVE THERAPY
     Dosage: 480 MG, BID
     Route: 048
     Dates: start: 20100915, end: 20101006

REACTIONS (1)
  - TYPE 2 DIABETES MELLITUS [None]
